FAERS Safety Report 16304668 (Version 1)
Quarter: 2019Q2

REPORT INFORMATION
  Report Type: Spontaneous
  Country: US (occurrence: US)
  Receive Date: 20190510
  Receipt Date: 20190510
  Transmission Date: 20190711
  Serious: Yes (Other)
  Sender: FDA-Public Use
  Company Number: None

PATIENT
  Age: 65 Year
  Sex: Female
  Weight: 59.85 kg

DRUGS (4)
  1. METHYPHENIDATE 20MG ER [Suspect]
     Active Substance: METHYLPHENIDATE HYDROCHLORIDE
     Indication: ATTENTION DEFICIT/HYPERACTIVITY DISORDER
     Dosage: ?          QUANTITY:1 TABLET(S);?
     Route: 048
     Dates: start: 20190405, end: 20190426
  2. METHYPHENIDATE 5MG [Suspect]
     Active Substance: METHYLPHENIDATE HYDROCHLORIDE
  3. ESTROGEN [Concomitant]
     Active Substance: ESTROGENS
  4. MULTIPLE VITAMIN [Concomitant]
     Active Substance: VITAMINS

REACTIONS (4)
  - Diarrhoea [None]
  - Inability to afford medication [None]
  - Abdominal pain upper [None]
  - Drug ineffective [None]

NARRATIVE: CASE EVENT DATE: 20190405
